FAERS Safety Report 8176517-3 (Version None)
Quarter: 2012Q1

REPORT INFORMATION
  Report Type: 
  Country: None (occurrence: None)
  Receive Date: 20120228
  Receipt Date: 20120217
  Transmission Date: 20120608
  Serious: Yes (Death)
  Sender: FDA-Public Use
  Company Number: 2012SP008945

PATIENT
  Age: 29 Year
  Sex: Male

DRUGS (3)
  1. SAPHRIS [Suspect]
     Indication: SCHIZOPHRENIA
     Dosage: 10 MG;BID;PO
     Route: 048
     Dates: end: 20120101
  2. SAPHRIS [Suspect]
     Indication: DEPRESSION
     Dosage: 10 MG;BID;PO
     Route: 048
     Dates: end: 20120101
  3. LISINOPRIL [Concomitant]

REACTIONS (3)
  - THERAPY CESSATION [None]
  - COMPLETED SUICIDE [None]
  - ECONOMIC PROBLEM [None]
